FAERS Safety Report 8500279-0 (Version None)
Quarter: 2012Q3

REPORT INFORMATION
  Report Type: 
  Country: None (occurrence: None)
  Receive Date: 20120710
  Receipt Date: 20120625
  Transmission Date: 20120928
  Serious: Yes (Death)
  Sender: FDA-Public Use
  Company Number: BE-GENZYME-CLOF-1002199

PATIENT
  Age: 56 Year
  Sex: Female

DRUGS (1)
  1. CLOFARABINE [Suspect]
     Indication: ACUTE MYELOMONOCYTIC LEUKAEMIA
     Dosage: 80 MG, QD
     Route: 065

REACTIONS (1)
  - DEATH [None]
